FAERS Safety Report 15452283 (Version 2)
Quarter: 2018Q4

REPORT INFORMATION
  Report Type: Spontaneous
  Country: IT (occurrence: IT)
  Receive Date: 20181001
  Receipt Date: 20181102
  Transmission Date: 20190204
  Serious: Yes (Life-Threatening)
  Sender: FDA-Public Use
  Company Number: IT-MYLANLABS-2018M1071504

PATIENT
  Age: 87 Year
  Sex: Female
  Weight: 80 kg

DRUGS (1)
  1. VALACICLOVIR [Suspect]
     Active Substance: VALACYCLOVIR HYDROCHLORIDE
     Indication: HERPES ZOSTER
     Dosage: 1000 ?G, QD
     Route: 048
     Dates: start: 20180425, end: 20180426

REACTIONS (5)
  - Dyspnoea [Recovered/Resolved]
  - Swelling face [Recovered/Resolved]
  - Rash [Recovered/Resolved]
  - Blood pressure decreased [Recovered/Resolved]
  - Loss of consciousness [Recovered/Resolved]

NARRATIVE: CASE EVENT DATE: 20180426
